FAERS Safety Report 8590503-0 (Version None)
Quarter: 2012Q3

REPORT INFORMATION
  Report Type: 
  Country: None (occurrence: None)
  Receive Date: 20120813
  Receipt Date: 20120809
  Transmission Date: 20120928
  Serious: Yes (Life-Threatening, Hospitalization)
  Sender: FDA-Public Use
  Company Number: PHHY2012NO068983

PATIENT
  Sex: Female

DRUGS (7)
  1. CALCIGRAN [Concomitant]
  2. FOLIC ACID [Concomitant]
  3. ILARIS [Suspect]
     Dosage: 150 MG (DOSE WAS REDUCED TO HALF)
  4. OMEPRAZOLE (PRISOLEC) [Concomitant]
  5. PREDNISOLONE [Concomitant]
  6. ILARIS [Suspect]
     Indication: JUVENILE ARTHRITIS
     Dosage: 300 MG EVERY 4TH WEEK
     Dates: start: 20110501
  7. METHOTREXATE [Concomitant]

REACTIONS (9)
  - LEUKOPENIA [None]
  - PARVOVIRUS INFECTION [None]
  - HISTIOCYTOSIS HAEMATOPHAGIC [None]
  - THROMBOCYTOPENIA [None]
  - RASH [None]
  - SERUM FERRITIN INCREASED [None]
  - BONE MARROW DISORDER [None]
  - GENERAL PHYSICAL HEALTH DETERIORATION [None]
  - PYREXIA [None]
